FAERS Safety Report 20748603 (Version 2)
Quarter: 2022Q2

REPORT INFORMATION
  Report Type: Spontaneous
  Country: BE (occurrence: BE)
  Receive Date: 20220426
  Receipt Date: 20220427
  Transmission Date: 20220721
  Serious: Yes (Other)
  Sender: FDA-Public Use
  Company Number: BE-ABBVIE-22K-013-4370163-00

PATIENT
  Sex: Female

DRUGS (1)
  1. RINVOQ [Suspect]
     Active Substance: UPADACITINIB
     Indication: Product used for unknown indication
     Route: 048

REACTIONS (5)
  - Stevens-Johnson syndrome [Unknown]
  - Erythema multiforme [Unknown]
  - Acute generalised exanthematous pustulosis [Unknown]
  - Oral disorder [Unknown]
  - Vaginal disorder [Unknown]

NARRATIVE: CASE EVENT DATE: 20211001
